FAERS Safety Report 10345121 (Version 1)
Quarter: 2014Q3

REPORT INFORMATION
  Report Type: Spontaneous
  Country: FR (occurrence: FR)
  Receive Date: 20140728
  Receipt Date: 20140728
  Transmission Date: 20150326
  Serious: Yes (Hospitalization)
  Sender: FDA-Public Use
  Company Number: FR-ASTRAZENECA-2014SE52976

PATIENT
  Age: 31 Year
  Sex: Female
  Weight: 68 kg

DRUGS (7)
  1. PROFENID [Concomitant]
     Active Substance: KETOPROFEN
  2. BETADINE [Concomitant]
     Active Substance: POVIDONE-IODINE
     Indication: INFECTION PROPHYLAXIS
     Dosage: THREE TIMES
  3. CEFAZOLINE [Concomitant]
     Active Substance: CEFAZOLIN SODIUM
     Indication: ANTIBIOTIC PROPHYLAXIS
  4. BUPIVACAINE [Suspect]
     Active Substance: BUPIVACAINE
     Indication: ANAESTHESIA
     Route: 037
  5. MORPHINE [Concomitant]
     Active Substance: MORPHINE
     Indication: ANAESTHESIA
  6. NEFOPAM [Concomitant]
     Active Substance: NEFOPAM
  7. PARACETAMOL [Concomitant]
     Active Substance: ACETAMINOPHEN

REACTIONS (1)
  - Meningitis aseptic [Recovered/Resolved]
